FAERS Safety Report 5694773-8 (Version None)
Quarter: 2008Q2

REPORT INFORMATION
  Report Type: 
  Country: None (occurrence: None)
  Receive Date: 20080404
  Receipt Date: 20080328
  Transmission Date: 20081010
  Serious: Yes (Disabling)
  Sender: FDA-Public Use
  Company Number: GB-ASTRAZENECA-2008GB00548

PATIENT
  Sex: Male
  Weight: 92.1 kg

DRUGS (7)
  1. QUETIAPINE FUMARATE [Suspect]
     Route: 048
     Dates: start: 20071015, end: 20080209
  2. DICLOFENAC SODIUM [Concomitant]
     Indication: BACK PAIN
     Route: 048
     Dates: start: 20040101
  3. FLUOXETINE [Concomitant]
     Indication: DEPRESSION
     Dosage: 20 MG
     Route: 048
     Dates: start: 19980101
  4. METHADON HCL TAB [Concomitant]
     Indication: PAIN MANAGEMENT
     Dosage: 90 MG
     Route: 048
     Dates: start: 20010101
  5. OLANZAPINE [Concomitant]
     Indication: BIPOLAR DISORDER
     Dosage: 20 MG
     Route: 048
     Dates: start: 19990101, end: 20071014
  6. OMEPRAZOLE [Concomitant]
     Indication: GASTROOESOPHAGEAL REFLUX DISEASE
     Dosage: 20 MG
     Route: 048
     Dates: start: 20060101
  7. ZOPICLONE [Concomitant]
     Indication: INSOMNIA
     Route: 048
     Dates: start: 20040101

REACTIONS (3)
  - HYPERHIDROSIS [None]
  - LYMPHADENOPATHY [None]
  - SPLENOMEGALY [None]
